FAERS Safety Report 8204261-2 (Version None)
Quarter: 2012Q1

REPORT INFORMATION
  Report Type: 
  Country: None (occurrence: None)
  Receive Date: 20120309
  Receipt Date: 20120216
  Transmission Date: 20120608
  Serious: Yes (Disabling)
  Sender: FDA-Public Use
  Company Number: AUR-APL-2012-00999

PATIENT
  Age: 80 Year
  Sex: Female

DRUGS (2)
  1. LOSARTAN POTASSIUM [Suspect]
     Indication: HYPERTENSION
     Dosage: UNKNOWN
  2. PREDNISONE (PREDNOISONE) [Concomitant]

REACTIONS (12)
  - MALAISE [None]
  - SLEEP DISORDER [None]
  - REFUSAL OF TREATMENT BY PATIENT [None]
  - FATIGUE [None]
  - HEADACHE [None]
  - LACERATION [None]
  - DRUG INEFFECTIVE [None]
  - CONDITION AGGRAVATED [None]
  - SOMNOLENCE [None]
  - INSOMNIA [None]
  - ARTHRITIS [None]
  - COUGH [None]
